FAERS Safety Report 22213091 (Version 1)
Quarter: 2023Q2

REPORT INFORMATION
  Report Type: Spontaneous
  Country: US (occurrence: US)
  Receive Date: 20230414
  Receipt Date: 20230414
  Transmission Date: 20230722
  Serious: No
  Sender: FDA-Public Use
  Company Number: US-ALLERGAN-2208083US

PATIENT

DRUGS (1)
  1. LILETTA [Suspect]
     Active Substance: LEVONORGESTREL
     Indication: Maternal exposure during breast feeding
     Dosage: 52 MG, SINGLE
     Route: 063
     Dates: start: 20220225

REACTIONS (1)
  - Maternal exposure during breast feeding [Unknown]

NARRATIVE: CASE EVENT DATE: 20220225
